FAERS Safety Report 9826038 (Version 1)
Quarter: 2014Q1

REPORT INFORMATION
  Report Type: Spontaneous
  Country: DE (occurrence: None)
  Receive Date: 20140115
  Receipt Date: 20140115
  Transmission Date: 20141002
  Serious: Yes (Congenital Anomaly)
  Sender: FDA-Public Use
  Company Number: 2014P1000176

PATIENT
  Sex: 0

DRUGS (1)
  1. VALPROATE SODIUM [Suspect]
     Route: 064

REACTIONS (3)
  - Foetal anticonvulsant syndrome [None]
  - Maternal drugs affecting foetus [None]
  - Craniosynostosis [None]
